FAERS Safety Report 5252100-4 (Version None)
Quarter: 2007Q1

REPORT INFORMATION
  Report Type: 
  Country: None (occurrence: None)
  Receive Date: 20070226
  Receipt Date: 20070214
  Transmission Date: 20070707
  Serious: Yes (Life-Threatening, Hospitalization)
  Sender: FDA-Public Use
  Company Number: A-JP2007-14062

PATIENT
  Age: 82 Year
  Sex: Female
  Weight: 44 kg

DRUGS (20)
  1. TRACLEER [Suspect]
     Indication: PULMONARY HYPERTENSION
     Dosage: 62.5 MG, QD, ORAL
     Route: 048
     Dates: start: 20060705, end: 20060718
  2. TRACLEER [Suspect]
     Indication: PULMONARY HYPERTENSION
     Dosage: 62.5 MG, QD, ORAL
     Route: 048
     Dates: start: 20060719, end: 20061030
  3. TRACLEER [Suspect]
     Indication: PULMONARY HYPERTENSION
     Dosage: 62.5 MG, QD, ORAL
     Route: 048
     Dates: start: 20061031, end: 20061130
  4. TRACLEER [Suspect]
     Indication: PULMONARY HYPERTENSION
     Dosage: 62.5 MG, QD, ORAL
     Route: 048
     Dates: start: 20061201, end: 20061206
  5. NIFEDIPINE [Concomitant]
  6. VALSARTAN [Concomitant]
  7. BISOPROLOL FUMARATE [Concomitant]
  8. FERROUS SODIUM CITRATE (FERROUS SODIUM CITRATE) [Concomitant]
  9. ASPIRIN [Concomitant]
  10. TICLOPIDINE HCL [Concomitant]
  11. DIPYRIDAMOLE [Concomitant]
  12. ETHYL ICOSAPENTATE (ETHYL ICOSAPENTATE) [Concomitant]
  13. ASCORBIC ACID [Concomitant]
  14. CALCIUM PANTOTHENATE (CALCIUM PANTOTHENATE) [Concomitant]
  15. TEPRENONE (TEPRENONE ) [Concomitant]
  16. MAGNESIUM OXIDE (MAGNESIUM OXIDE) [Concomitant]
  17. AZOSEMIDE (AZOSEMIDE) [Concomitant]
  18. GUANABENZ ACETATE (GUANABENZ ACETATE) [Concomitant]
  19. KETOPROFEN [Concomitant]
  20. OXYGEN (OXYGEN) [Concomitant]

REACTIONS (5)
  - ASPARTATE AMINOTRANSFERASE INCREASED [None]
  - BLOOD ALKALINE PHOSPHATASE INCREASED [None]
  - CARDIOMYOPATHY [None]
  - GAMMA-GLUTAMYLTRANSFERASE INCREASED [None]
  - HEPATIC FUNCTION ABNORMAL [None]
